FAERS Safety Report 4404951-3 (Version None)
Quarter: 2004Q3

REPORT INFORMATION
  Report Type: 
  Country: None (occurrence: None)
  Receive Date: 20040716
  Receipt Date: 20040706
  Transmission Date: 20050211
  Serious: Yes (Other)
  Sender: FDA-Public Use
  Company Number: HQWYE945108JUL04

PATIENT
  Age: 40 Year
  Sex: Female
  Weight: 54.48 kg

DRUGS (7)
  1. EFFEXOR XR [Suspect]
     Indication: DEPRESSION
     Dosage: SEE IMAGE
     Route: 048
     Dates: start: 20040528, end: 20040101
  2. EFFEXOR XR [Suspect]
     Indication: DEPRESSION
     Dosage: SEE IMAGE
     Route: 048
     Dates: start: 20040301, end: 20040523
  3. EFFEXOR XR [Suspect]
     Indication: DEPRESSION
     Dosage: SEE IMAGE
     Route: 048
     Dates: start: 20040101, end: 20040601
  4. EFFEXOR XR [Suspect]
     Indication: DEPRESSION
     Dosage: SEE IMAGE
     Route: 048
     Dates: start: 20040601
  5. ADVAIR DISKUS [Concomitant]
  6. PREVACID [Concomitant]
  7. EXCEDRIN (ACETYLSALICYLIC ACID/CAFFEINE/PARACETAMOL/SALICYLAMIDE) [Concomitant]

REACTIONS (25)
  - ABDOMINAL DISTENSION [None]
  - ADVERSE EVENT [None]
  - AGGRESSION [None]
  - AGITATION [None]
  - CRYING [None]
  - DEPRESSION [None]
  - DIARRHOEA [None]
  - DRUG INEFFECTIVE [None]
  - DRUG WITHDRAWAL SYNDROME [None]
  - FEELING ABNORMAL [None]
  - FORMICATION [None]
  - HOSTILITY [None]
  - IMPAIRED WORK ABILITY [None]
  - INFLUENZA LIKE ILLNESS [None]
  - INSOMNIA [None]
  - IRRITABILITY [None]
  - MANIA [None]
  - NAUSEA [None]
  - SCREAMING [None]
  - SELF-MEDICATION [None]
  - STRESS SYMPTOMS [None]
  - SUICIDAL IDEATION [None]
  - TREATMENT NONCOMPLIANCE [None]
  - TREMOR [None]
  - VOMITING [None]
